FAERS Safety Report 4449248-0 (Version None)
Quarter: 2004Q3

REPORT INFORMATION
  Report Type: 
  Country: None (occurrence: None)
  Receive Date: 20040913
  Receipt Date: 20040609
  Transmission Date: 20050211
  Serious: Yes (Other)
  Sender: FDA-Public Use
  Company Number: 2003S1000037

PATIENT
  Age: 57 Year
  Sex: Male
  Weight: 87.3 kg

DRUGS (13)
  1. DAPTOMYCIN [Suspect]
     Indication: STAPHYLOCOCCAL BACTERAEMIA
     Dosage: 524 MG;Q24H;IV
     Route: 042
     Dates: start: 20030614, end: 20030627
  2. CEFTRIAXONE [Concomitant]
  3. OXACILLIN [Concomitant]
  4. VANCOMYCIN [Concomitant]
  5. VALIUM [Concomitant]
  6. PHENERGAN HCL [Concomitant]
  7. MORPHINE [Concomitant]
  8. HALDOL [Concomitant]
  9. HEPARIN [Concomitant]
  10. LANSOPRAZOLE [Concomitant]
  11. MULTI-VITAMIN [Concomitant]
  12. METHADONE HCL [Concomitant]
  13. OXACILLIN [Concomitant]

REACTIONS (6)
  - ATRIAL FIBRILLATION [None]
  - ATRIAL FLUTTER [None]
  - CONDITION AGGRAVATED [None]
  - OSTEOMYELITIS [None]
  - RENAL FAILURE [None]
  - TRICUSPID VALVE INCOMPETENCE [None]
